FAERS Safety Report 7474707-6 (Version None)
Quarter: 2011Q2

REPORT INFORMATION
  Report Type: 
  Country: None (occurrence: None)
  Receive Date: 20110512
  Receipt Date: 20110429
  Transmission Date: 20111010
  Serious: Yes (Hospitalization, Other)
  Sender: FDA-Public Use
  Company Number: GB-RANBAXY-2011RR-44252

PATIENT
  Sex: Male
  Weight: 3.38 kg

DRUGS (2)
  1. FLUOXETINE [Suspect]
     Dosage: 40 MG, UNK
     Route: 064
  2. FLUOXETINE [Suspect]
     Indication: DEPRESSION
     Dosage: 20 MG, UNK
     Route: 064

REACTIONS (13)
  - DRUG EXPOSURE DURING PREGNANCY [None]
  - MUSCLE TWITCHING [None]
  - MUSCLE SPASTICITY [None]
  - HYPERTONIA [None]
  - POSTURE ABNORMAL [None]
  - IRRITABILITY [None]
  - HYPOVENTILATION [None]
  - DYSKINESIA [None]
  - OPISTHOTONUS [None]
  - OXYGEN SATURATION DECREASED [None]
  - FEELING JITTERY [None]
  - FLOPPY INFANT [None]
  - DYSPNOEA [None]
